FAERS Safety Report 4602699-3 (Version None)
Quarter: 2005Q1

REPORT INFORMATION
  Report Type: 
  Country: None (occurrence: None)
  Receive Date: 20050307
  Receipt Date: 20050222
  Transmission Date: 20050727
  Serious: Yes (Hospitalization, Other)
  Sender: FDA-Public Use
  Company Number: 05-130

PATIENT
  Age: 82 Year
  Sex: Male

DRUGS (5)
  1. ISOPTIN [Suspect]
     Dosage: 3.0 DOSAGE FORM, 1 IN 1 D
     Dates: end: 20041117
  2. SPIRONOLACTONE [Concomitant]
  3. GINKGO BILOBA [Concomitant]
  4. GOSERELIN [Concomitant]
  5. FUROSEMIDE [Concomitant]

REACTIONS (8)
  - ATRIAL FIBRILLATION [None]
  - HAEMATURIA [None]
  - OBSTRUCTIVE UROPATHY [None]
  - OVERDOSE [None]
  - RENAL FAILURE ACUTE [None]
  - SINUS ARRHYTHMIA [None]
  - URINARY RETENTION [None]
  - VENTRICULAR EXTRASYSTOLES [None]
